FAERS Safety Report 10129734 (Version 1)
Quarter: 2014Q2

REPORT INFORMATION
  Report Type: Spontaneous
  Country: US (occurrence: None)
  Receive Date: 20140424
  Receipt Date: 20140424
  Transmission Date: 20141212
  Serious: Yes (Hospitalization)
  Sender: FDA-Public Use
  Company Number: 2014-000554

PATIENT
  Sex: 0

DRUGS (1)
  1. ACTONEL (RISEDRONATE SODIUM) TABLET, 17.5MG [Suspect]
     Route: 048

REACTIONS (2)
  - Influenza like illness [None]
  - C-reactive protein increased [None]
